FAERS Safety Report 5286964-5 (Version None)
Quarter: 2007Q1

REPORT INFORMATION
  Report Type: 
  Country: None (occurrence: None)
  Receive Date: 20070329
  Receipt Date: 20070323
  Transmission Date: 20070707
  Serious: Yes (Hospitalization, Other)
  Sender: FDA-Public Use
  Company Number: 2006AL002713

PATIENT
  Age: 72 Year
  Sex: Female

DRUGS (3)
  1. ACYCLOVIR [Suspect]
     Indication: HERPES ZOSTER
     Dosage: 4000 MG; QD; PO
     Route: 048
     Dates: start: 20060712, end: 20060718
  2. AMOXICILLIN/CLAVULANIC ACID [Concomitant]
  3. WARFARIN SODIUM [Concomitant]

REACTIONS (2)
  - HAEMATOMA [None]
  - INTERNATIONAL NORMALISED RATIO INCREASED [None]
